FAERS Safety Report 5213092-7 (Version None)
Quarter: 2007Q1

REPORT INFORMATION
  Report Type: 
  Country: None (occurrence: None)
  Receive Date: 20070118
  Receipt Date: 20070118
  Transmission Date: 20070707
  Serious: Yes (Death)
  Sender: FDA-Public Use
  Company Number: None

PATIENT
  Age: 60 Year
  Sex: Male

DRUGS (2)
  1. DEMEROL [Suspect]
  2. VERSED [Suspect]

REACTIONS (3)
  - APNOEA [None]
  - BLOOD PRESSURE DIASTOLIC INCREASED [None]
  - HEART RATE DECREASED [None]
